FAERS Safety Report 8078030-0 (Version None)
Quarter: 2012Q1

REPORT INFORMATION
  Report Type: 
  Country: None (occurrence: None)
  Receive Date: 20120127
  Receipt Date: 20110326
  Transmission Date: 20120608
  Serious: No
  Sender: FDA-Public Use
  Company Number: US-ABBOTT-10P-163-0680910-00

PATIENT
  Age: 47 Year
  Sex: Female

DRUGS (12)
  1. MERCAPTOPURNINE [Concomitant]
     Indication: PRODUCT USED FOR UNKNOWN INDICATION
  2. FISH OIL [Concomitant]
     Indication: PRODUCT USED FOR UNKNOWN INDICATION
  3. ESTER C [Concomitant]
     Indication: PRODUCT USED FOR UNKNOWN INDICATION
  4. ZANTAC [Concomitant]
     Indication: DYSPEPSIA
  5. PROGESTERONE [Concomitant]
     Indication: PRODUCT USED FOR UNKNOWN INDICATION
     Dosage: USED 14 DAYS OF THE MONTH 1/8 TSP ONCE IN THE MORNING AND ONCE AT NIGHT
  6. LYSINE [Concomitant]
     Indication: ORAL HERPES
  7. CURCUMIN [Concomitant]
     Indication: PRODUCT USED FOR UNKNOWN INDICATION
  8. MULTI-VITAMIN [Concomitant]
     Indication: PRODUCT USED FOR UNKNOWN INDICATION
  9. CALCIUM WITH D AND MAGNESIUM [Concomitant]
     Indication: PRODUCT USED FOR UNKNOWN INDICATION
  10. PROBIOTICS [Concomitant]
     Indication: PRODUCT USED FOR UNKNOWN INDICATION
     Dosage: ONE DAILY
  11. HUMIRA [Suspect]
     Indication: CROHN'S DISEASE
     Dates: start: 20100910
  12. CALCIUM [Concomitant]
     Indication: PRODUCT USED FOR UNKNOWN INDICATION

REACTIONS (13)
  - STRESS [None]
  - MENOPAUSE [None]
  - INJECTION SITE HAEMORRHAGE [None]
  - EMOTIONAL DISORDER [None]
  - WRONG TECHNIQUE IN DRUG USAGE PROCESS [None]
  - INJECTION SITE EXTRAVASATION [None]
  - PREMENSTRUAL SYNDROME [None]
  - TEARFULNESS [None]
  - HEADACHE [None]
  - INJECTION SITE PAIN [None]
  - MENSTRUATION IRREGULAR [None]
  - INCORRECT DOSE ADMINISTERED [None]
  - MOOD SWINGS [None]
